FAERS Safety Report 4838053-9 (Version None)
Quarter: 2005Q4

REPORT INFORMATION
  Report Type: 
  Country: None (occurrence: None)
  Receive Date: 20051123
  Receipt Date: 20051123
  Transmission Date: 20060501
  Serious: Yes (Hospitalization)
  Sender: FDA-Public Use
  Company Number: None

PATIENT
  Age: 57 Year
  Sex: Male
  Weight: 89 kg

DRUGS (1)
  1. ERLOTNIB-1500 MG [Suspect]
     Indication: NON-SMALL CELL LUNG CANCER
     Dosage: ORAL/DAY 2+3 21 DAY CY
     Route: 048
     Dates: start: 20051109, end: 20051110

REACTIONS (9)
  - ASTHENIA [None]
  - BLOOD POTASSIUM DECREASED [None]
  - CHEST PAIN [None]
  - HAEMOPTYSIS [None]
  - HYPOAESTHESIA [None]
  - ORAL INTAKE REDUCED [None]
  - PAIN [None]
  - PYREXIA [None]
  - RASH [None]
